FAERS Safety Report 21878380 (Version 1)
Quarter: 2023Q1

REPORT INFORMATION
  Report Type: Other
  Country: CA (occurrence: None)
  Receive Date: 20230118
  Receipt Date: 20230118
  Transmission Date: 20230417
  Serious: Yes (Hospitalization, Other)
  Sender: FDA-Public Use
  Company Number: CA-ROCHE-3263182

PATIENT
  Age: 78 Year
  Sex: Male

DRUGS (8)
  1. CAPECITABINE [Suspect]
     Active Substance: CAPECITABINE
     Indication: Adenocarcinoma gastric
     Dosage: (800 MG/M2) TWICE A DAY FOR 2 WEEKS ON, 1 WEEK OFF
     Route: 048
  2. TRASTUZUMAB [Suspect]
     Active Substance: TRASTUZUMAB
     Indication: Adenocarcinoma gastric
     Dosage: (6 MG/KG AFTER A FIRST CYCLE AT 8 MG/KG) EVERY 3 WEEKS
     Route: 065
  3. CARBOPLATIN [Suspect]
     Active Substance: CARBOPLATIN
     Indication: Adenocarcinoma gastric
     Dosage: 4 AREA UNDER THE CURVE
     Route: 065
  4. RALTITREXED [Suspect]
     Active Substance: RALTITREXED
     Indication: Adenocarcinoma gastric
     Route: 065
  5. CISPLATIN [Concomitant]
     Active Substance: CISPLATIN
  6. FLUOROURACIL [Concomitant]
     Active Substance: FLUOROURACIL
  7. NITROGLYCERIN [Concomitant]
     Active Substance: NITROGLYCERIN
  8. PRIMOVIST [Concomitant]
     Active Substance: GADOXETATE DISODIUM

REACTIONS (6)
  - Acute myocardial infarction [Unknown]
  - Myelosuppression [Unknown]
  - Fatigue [Unknown]
  - Anaemia [Unknown]
  - Hepatic lesion [Unknown]
  - Disease progression [Unknown]
